FAERS Safety Report 4533639-3 (Version None)
Quarter: 2004Q4

REPORT INFORMATION
  Report Type: 
  Country: None (occurrence: None)
  Receive Date: 20041221
  Receipt Date: 20041209
  Transmission Date: 20050328
  Serious: Yes (Hospitalization)
  Sender: FDA-Public Use
  Company Number: US-GLAXOSMITHKLINE-A0536756A

PATIENT
  Age: 65 Year
  Sex: Female

DRUGS (2)
  1. NICODERM CQ [Suspect]
     Indication: SMOKING CESSATION THERAPY
     Route: 062
     Dates: start: 20040701, end: 20040701
  2. NICODERM CQ [Suspect]
     Indication: SMOKING CESSATION THERAPY
     Dosage: 14MG TWICE PER DAY
     Route: 062
     Dates: start: 20040901, end: 20041201

REACTIONS (3)
  - COLLAPSE OF LUNG [None]
  - PHARMACEUTICAL PRODUCT COMPLAINT [None]
  - TREMOR [None]
